FAERS Safety Report 7605907-X (Version None)
Quarter: 2011Q3

REPORT INFORMATION
  Report Type: 
  Country: None (occurrence: None)
  Receive Date: 20110713
  Receipt Date: 20110608
  Transmission Date: 20111222
  Serious: Yes (Other)
  Sender: FDA-Public Use
  Company Number: IT-PFIZER INC-2011014910

PATIENT
  Age: 76 Year
  Sex: Male

DRUGS (1)
  1. SUTENT [Suspect]
     Indication: RENAL CANCER
     Dosage: 50 MG, 1X/DAY
     Route: 048
     Dates: start: 20091126, end: 20091216

REACTIONS (6)
  - SYNCOPE [None]
  - PRESYNCOPE [None]
  - ASTHENIA [None]
  - NAUSEA [None]
  - MALAISE [None]
  - ASTRINGENT THERAPY [None]
